FAERS Safety Report 9241540 (Version 3)
Quarter: 2013Q3

REPORT INFORMATION
  Report Type: Spontaneous
  Country: US (occurrence: US)
  Receive Date: 20130419
  Receipt Date: 20130906
  Transmission Date: 20140515
  Serious: Yes (Death, Other)
  Sender: FDA-Public Use
  Company Number: US-PFIZER INC-2013119973

PATIENT
  Age: 67 Year
  Sex: Female
  Weight: 81.63 kg

DRUGS (6)
  1. REVATIO [Suspect]
     Indication: PULMONARY ARTERIAL HYPERTENSION
     Dosage: 20 MG, 3X/DAY
     Route: 048
     Dates: end: 201304
  2. REVATIO [Suspect]
     Dosage: 20 MG, 2X/DAY
     Route: 048
     Dates: start: 201304
  3. REMODULIN [Concomitant]
     Dosage: UNK, 1X/DAY
  4. LETAIRIS [Concomitant]
     Dosage: 10 MG, 1X/DAY
  5. WARFARIN [Concomitant]
     Dosage: 2 MG, 1X/DAY
  6. LASIX [Concomitant]
     Dosage: 20 MG, 1X/DAY

REACTIONS (4)
  - Right ventricular failure [Fatal]
  - Hypotension [Unknown]
  - Oedema peripheral [Unknown]
  - Oedema peripheral [Unknown]
